FAERS Safety Report 14669803 (Version 3)
Quarter: 2018Q2

REPORT INFORMATION
  Report Type: Spontaneous
  Country: US (occurrence: US)
  Receive Date: 20180322
  Receipt Date: 20180417
  Transmission Date: 20180711
  Serious: No
  Sender: FDA-Public Use
  Company Number: US-GLAXOSMITHKLINE-US2018047698

PATIENT
  Sex: Female

DRUGS (2)
  1. FLOVENT DISKUS [Suspect]
     Active Substance: FLUTICASONE PROPIONATE
     Indication: COUGH
  2. FLOVENT DISKUS [Suspect]
     Active Substance: FLUTICASONE PROPIONATE
     Indication: PNEUMONIA
     Dosage: 1 PUFF(S), BID
     Route: 055
     Dates: start: 20180201

REACTIONS (4)
  - Product use in unapproved indication [Unknown]
  - Product quality issue [Unknown]
  - Drug dose omission [Unknown]
  - Off label use [Unknown]
